FAERS Safety Report 5993376-5 (Version None)
Quarter: 2008Q4

REPORT INFORMATION
  Report Type: 
  Country: None (occurrence: None)
  Receive Date: 20081212
  Receipt Date: 20081201
  Transmission Date: 20090506
  Serious: Yes (Disabling)
  Sender: FDA-Public Use
  Company Number: US-WYE-H06587208

PATIENT
  Sex: Female

DRUGS (5)
  1. EFFEXOR XR [Suspect]
     Indication: DEPRESSION
     Route: 048
     Dates: end: 20080101
  2. EFFEXOR XR [Suspect]
     Dosage: TAPERED TO 75 MG DAILY
     Route: 048
     Dates: start: 20080101, end: 20080101
  3. EFFEXOR XR [Suspect]
     Route: 048
     Dates: start: 20080101, end: 20081001
  4. EFFEXOR XR [Suspect]
     Route: 048
     Dates: start: 20000101
  5. LEXAPRO [Concomitant]
     Dosage: 10 MG, FREQUENCY UNKNOWN
     Dates: start: 20080820, end: 20080903

REACTIONS (6)
  - AMNESIA [None]
  - ANXIETY [None]
  - DRUG WITHDRAWAL SYNDROME [None]
  - DYSKINESIA [None]
  - MUSCLE TWITCHING [None]
  - RESTLESSNESS [None]
